FAERS Safety Report 23235983 (Version 7)
Quarter: 2025Q3

REPORT INFORMATION
  Report Type: Spontaneous
  Country: US (occurrence: US)
  Receive Date: 20231128
  Receipt Date: 20250718
  Transmission Date: 20251021
  Serious: Yes (Other)
  Sender: PFIZER
  Company Number: US-PFIZER INC-PV202300087834

PATIENT
  Age: 69 Year
  Weight: 102.06 kg

DRUGS (3)
  1. BRAFTOVI [Suspect]
     Active Substance: ENCORAFENIB
     Indication: Gastric cancer
  2. BRAFTOVI [Suspect]
     Active Substance: ENCORAFENIB
     Dosage: 450 MG, 1X/DAY (75 MG X 6)
     Route: 048
  3. MEKTOVI [Suspect]
     Active Substance: BINIMETINIB
     Indication: Gastric cancer
     Dosage: 45 MG, 2X/DAY (15 MG X 3)
     Route: 048
     Dates: start: 202306

REACTIONS (3)
  - Metastasis [Unknown]
  - Seizure [Unknown]
  - Off label use [Unknown]
